FAERS Safety Report 14235654 (Version 1)
Quarter: 2017Q4

REPORT INFORMATION
  Report Type: Spontaneous
  Country: US (occurrence: None)
  Receive Date: 20171128
  Receipt Date: 20171128
  Transmission Date: 20180321
  Serious: Yes (Other)
  Sender: FDA-Public Use
  Company Number: None

PATIENT
  Age: 57 Year
  Sex: Female
  Weight: 63.5 kg

DRUGS (1)
  1. CREST WHITENING SYSTEMS STRIPS WHITESTRIPS SUPREME FLEXFIT NO FLAVOR-SCENT 21CT BOX [Suspect]
     Active Substance: HYDROGEN PEROXIDE
     Dosage: DOSE - 1 APPLICATION?FREQUENCY - 1-2/DAY?ROUTE - INTRAORAL
     Dates: start: 20170907, end: 20170912

REACTIONS (6)
  - Device physical property issue [None]
  - Tooth fracture [None]
  - Injury associated with device [None]
  - Intentional device misuse [None]
  - Device used for unapproved schedule [None]
  - Device difficult to use [None]

NARRATIVE: CASE EVENT DATE: 20170912
